FAERS Safety Report 6128204-0 (Version None)
Quarter: 2009Q1

REPORT INFORMATION
  Report Type: 
  Country: None (occurrence: None)
  Receive Date: 20090323
  Receipt Date: 20090313
  Transmission Date: 20090719
  Serious: Yes (Death, Hospitalization, Other)
  Sender: FDA-Public Use
  Company Number: IE-PFIZER INC-2009184095

PATIENT

DRUGS (2)
  1. LIPITOR [Suspect]
     Route: 048
  2. FUSIDIC ACID [Interacting]

REACTIONS (5)
  - DRUG INTERACTION [None]
  - FALL [None]
  - LOWER LIMB FRACTURE [None]
  - NOSOCOMIAL INFECTION [None]
  - RHABDOMYOLYSIS [None]
